FAERS Safety Report 7029743-0 (Version None)
Quarter: 2010Q4

REPORT INFORMATION
  Report Type: 
  Country: None (occurrence: None)
  Receive Date: 20101005
  Receipt Date: 20101005
  Transmission Date: 20110411
  Serious: Yes (Disabling)
  Sender: FDA-Public Use
  Company Number: None

PATIENT
  Age: 2 Year
  Sex: Male
  Weight: 14.4 kg

DRUGS (3)
  1. EPOGEN [Suspect]
     Indication: ANAEMIA
     Dosage: 2400 UNITS TWICE WEEKLY SQ
     Route: 058
  2. EPOGEN [Suspect]
     Indication: RENAL FAILURE CHRONIC
     Dosage: 2400 UNITS TWICE WEEKLY SQ
     Route: 058
  3. EPOGEN [Suspect]

REACTIONS (1)
  - HAEMOGLOBIN INCREASED [None]
